FAERS Safety Report 21605600 (Version 1)
Quarter: 2022Q4

REPORT INFORMATION
  Report Type: Report from Study
  Country: DK (occurrence: DK)
  Receive Date: 20221116
  Receipt Date: 20221116
  Transmission Date: 20230113
  Serious: Yes (Other)
  Sender: FDA-Public Use
  Company Number: None

PATIENT
  Age: 72 Year
  Sex: Female
  Weight: 50 kg

DRUGS (4)
  1. REMDESIVIR [Interacting]
     Active Substance: REMDESIVIR
     Indication: COVID-19 pneumonia
     Dosage: 100 MG ADMINISTERED AT UNKNOWN INTERVAL
     Route: 042
     Dates: start: 20221006
  2. OXYCODONE HYDROCHLORIDE [Interacting]
     Active Substance: OXYCODONE HYDROCHLORIDE
     Indication: Pain
     Dosage: 5 MG, QD
     Route: 048
     Dates: start: 20181130
  3. CHLORPROTHIXENE [Interacting]
     Active Substance: CHLORPROTHIXENE
     Indication: Sedative therapy
     Dosage: 25 MG
     Route: 048
     Dates: start: 20210919
  4. OXAZEPAM [Interacting]
     Active Substance: OXAZEPAM
     Indication: Sedative therapy
     Dosage: 15 MG
     Route: 048
     Dates: start: 20210928

REACTIONS (2)
  - Loss of consciousness [Unknown]
  - Drug interaction [Unknown]

NARRATIVE: CASE EVENT DATE: 20221001
